FAERS Safety Report 7884990-0 (Version None)
Quarter: 2011Q4

REPORT INFORMATION
  Report Type: 
  Country: None (occurrence: None)
  Receive Date: 20111102
  Receipt Date: 20111024
  Transmission Date: 20120403
  Serious: Yes (Hospitalization)
  Sender: FDA-Public Use
  Company Number: JP-EISAI INC-E7389-01685-SPO-JP

PATIENT
  Age: 56 Year
  Sex: Male

DRUGS (1)
  1. HALAVEN [Suspect]
     Indication: BREAST CANCER RECURRENT
     Route: 041
     Dates: start: 20110902, end: 20111002

REACTIONS (2)
  - DIARRHOEA [None]
  - DEHYDRATION [None]
